FAERS Safety Report 9407707 (Version 4)
Quarter: 2013Q4

REPORT INFORMATION
  Report Type: Spontaneous
  Country: US (occurrence: US)
  Receive Date: 20130718
  Receipt Date: 20131010
  Transmission Date: 20140711
  Serious: No
  Sender: FDA-Public Use
  Company Number: US-PFIZER INC-2013211167

PATIENT
  Sex: Female

DRUGS (1)
  1. NEURONTIN [Suspect]
     Dosage: 300 (NO UNITS PROVIDED)

REACTIONS (4)
  - Hunger [Unknown]
  - Insomnia [Unknown]
  - Nervousness [Unknown]
  - Headache [Unknown]
